FAERS Safety Report 15456623 (Version 1)
Quarter: 2018Q4

REPORT INFORMATION
  Report Type: Spontaneous
  Country: US (occurrence: US)
  Receive Date: 20181002
  Receipt Date: 20181002
  Transmission Date: 20190204
  Serious: Yes (Other)
  Sender: FDA-Public Use
  Company Number: US-LOREAL USA PRODUCTS, INC.-2018LOR00007

PATIENT
  Sex: Female

DRUGS (1)
  1. ABSOLUE PREMIUM BX SUNSCREEN BROAD SPECTRUM SPF 15 ABSOLUTE REPLENISHING [Suspect]
     Active Substance: AVOBENZONE\OCTISALATE\OCTOCRYLENE
     Dosage: UNK UNK
     Dates: start: 20180910, end: 20180910

REACTIONS (4)
  - Swelling [Recovered/Resolved]
  - Sneezing [Recovered/Resolved]
  - Dysphonia [Recovered/Resolved]
  - Pruritus [Recovered/Resolved]

NARRATIVE: CASE EVENT DATE: 20180910
